FAERS Safety Report 25726185 (Version 1)
Quarter: 2025Q3

REPORT INFORMATION
  Report Type: Spontaneous
  Country: TR (occurrence: TR)
  Receive Date: 20250826
  Receipt Date: 20250826
  Transmission Date: 20251021
  Serious: Yes (Other)
  Sender: ABBVIE
  Company Number: TR-ABBVIE-6429541

PATIENT
  Age: 50 Year
  Sex: Female

DRUGS (1)
  1. HUMIRA [Suspect]
     Active Substance: ADALIMUMAB
     Indication: Crohn^s disease
     Route: 058
     Dates: start: 202505, end: 202506

REACTIONS (5)
  - Hand dermatitis [Unknown]
  - Fatigue [Unknown]
  - Nausea [Unknown]
  - Arthralgia [Unknown]
  - Dizziness [Unknown]

NARRATIVE: CASE EVENT DATE: 20250101
